FAERS Safety Report 4827574-0 (Version None)
Quarter: 2005Q4

REPORT INFORMATION
  Report Type: 
  Country: None (occurrence: None)
  Receive Date: 20051114
  Receipt Date: 20050921
  Transmission Date: 20060501
  Serious: Yes (Hospitalization)
  Sender: FDA-Public Use
  Company Number: ZA-BRISTOL-MYERS SQUIBB COMPANY-13118211

PATIENT
  Age: 48 Year
  Sex: Male

DRUGS (8)
  1. CISPLATIN [Suspect]
     Indication: GASTRIC CANCER
     Route: 042
     Dates: start: 20050902, end: 20050902
  2. FLUOROURACIL [Suspect]
     Indication: GASTRIC CANCER
     Route: 042
     Dates: start: 20050902, end: 20050904
  3. KYTRIL [Concomitant]
     Indication: NAUSEA
     Route: 048
     Dates: start: 20050201
  4. CIPRAMIL [Concomitant]
     Indication: DEPRESSION
     Route: 048
     Dates: start: 20050812
  5. ALPRAZOLAM [Concomitant]
     Indication: ANXIETY
     Route: 048
     Dates: start: 20050905
  6. LENTOGESIC [Concomitant]
     Indication: PAIN
     Route: 048
     Dates: start: 20050801
  7. MAXOLON [Concomitant]
     Indication: NAUSEA
     Route: 048
     Dates: start: 20050810
  8. PREDNISONE [Concomitant]
     Indication: NAUSEA
     Route: 048
     Dates: start: 20050905

REACTIONS (7)
  - BLOOD CREATININE INCREASED [None]
  - BLOOD SODIUM DECREASED [None]
  - BLOOD UREA INCREASED [None]
  - DEHYDRATION [None]
  - NAUSEA [None]
  - ORAL INTAKE REDUCED [None]
  - VOMITING [None]
